FAERS Safety Report 4677386-6 (Version None)
Quarter: 2005Q2

REPORT INFORMATION
  Report Type: 
  Country: None (occurrence: None)
  Receive Date: 20050526
  Receipt Date: 20050513
  Transmission Date: 20051028
  Serious: Yes (Death)
  Sender: FDA-Public Use
  Company Number: 2005-128207-NL

PATIENT
  Age: 76 Year
  Sex: Female

DRUGS (12)
  1. MIRTAZAPINE [Suspect]
     Indication: AGITATION
     Dosage: 30 MG QD ORAL
     Route: 048
  2. MIRTAZAPINE [Suspect]
     Indication: CONFUSIONAL STATE
     Dosage: 30 MG QD ORAL
     Route: 048
  3. MIRTAZAPINE [Suspect]
     Indication: DELIRIUM
     Dosage: 30 MG QD ORAL
     Route: 048
  4. MIRTAZAPINE [Suspect]
     Indication: DEMENTIA
     Dosage: 30 MG QD ORAL
     Route: 048
  5. PROTHIPENDYL HYDROCHLORIDE [Suspect]
     Dosage: 80 MG QD ORAL
     Route: 048
  6. TRAMADOL HCL [Suspect]
     Dosage: 60 DF ORAL
     Route: 048
  7. VALPROIC ACID [Concomitant]
  8. SODIUM PICOSULFATE [Concomitant]
  9. PROPRANOLOL HYDROCHLORIDE [Concomitant]
  10. PHENPROCOUMON [Concomitant]
  11. OXAZEPAM [Concomitant]
  12. SIMVASTATIN [Concomitant]

REACTIONS (2)
  - DRUG INTERACTION [None]
  - THERAPEUTIC AGENT TOXICITY [None]
